FAERS Safety Report 10097570 (Version 1)
Quarter: 2014Q2

REPORT INFORMATION
  Report Type: Spontaneous
  Country: US (occurrence: US)
  Receive Date: 20140423
  Receipt Date: 20140423
  Transmission Date: 20141212
  Serious: No
  Sender: FDA-Public Use
  Company Number: US-BIOGENIDEC-2013BI061898

PATIENT
  Age: 53 Year
  Sex: Female

DRUGS (2)
  1. TECFIDERA [Suspect]
     Indication: MULTIPLE SCLEROSIS
     Route: 048
     Dates: start: 20130610
  2. TYSABRI [Concomitant]
     Indication: MULTIPLE SCLEROSIS
     Route: 042
     Dates: start: 20120806

REACTIONS (8)
  - Trigeminal neuralgia [Recovered/Resolved with Sequelae]
  - Vertigo [Recovered/Resolved]
  - Urticaria [Recovered/Resolved]
  - Dizziness [Unknown]
  - Multiple sclerosis relapse [Unknown]
  - Flushing [Unknown]
  - Vomiting [Unknown]
  - Abdominal discomfort [Recovered/Resolved]
